FAERS Safety Report 4438053-7 (Version None)
Quarter: 2004Q3

REPORT INFORMATION
  Report Type: 
  Country: None (occurrence: None)
  Receive Date: 20040831
  Receipt Date: 20040512
  Transmission Date: 20050211
  Serious: Yes (Hospitalization)
  Sender: FDA-Public Use
  Company Number: US-GLAXOSMITHKLINE-A0510534A

PATIENT
  Age: 64 Year
  Sex: Female

DRUGS (5)
  1. WELLBUTRIN [Suspect]
     Indication: DEPRESSION
     Dosage: 150MG PER DAY
     Route: 048
     Dates: start: 20040504, end: 20040512
  2. COUMADIN [Concomitant]
  3. LASIX [Concomitant]
  4. BETA BLOCKER [Concomitant]
  5. DIOVAN [Concomitant]

REACTIONS (2)
  - DYSPNOEA [None]
  - LOCALISED OEDEMA [None]
